FAERS Safety Report 21941236 (Version 1)
Quarter: 2023Q1

REPORT INFORMATION
  Report Type: Report from Study
  Country: US (occurrence: US)
  Receive Date: 20230202
  Receipt Date: 20230202
  Transmission Date: 20230417
  Serious: No
  Sender: FDA-Public Use
  Company Number: US-EXELIXIS-CABO-22053903

PATIENT
  Age: 62 Year
  Sex: Male

DRUGS (22)
  1. CABOMETYX [Suspect]
     Active Substance: CABOZANTINIB S-MALATE
     Indication: Prostate cancer
     Dosage: 60 MG, QD
     Dates: start: 20220707, end: 202208
  2. CABOMETYX [Suspect]
     Active Substance: CABOZANTINIB S-MALATE
     Indication: Metastases to bone
     Dosage: 60 MG, QOD
     Dates: start: 20220825
  3. CABOMETYX [Suspect]
     Active Substance: CABOZANTINIB S-MALATE
     Dosage: 40 MG
     Dates: start: 202209
  4. ACETAMINOPHEN\HYDROCODONE [Concomitant]
     Active Substance: ACETAMINOPHEN\HYDROCODONE
     Dosage: UNK
  5. ADVIL [Concomitant]
     Active Substance: IBUPROFEN
     Dosage: UNK
  6. ALEVE [Concomitant]
     Active Substance: NAPROXEN SODIUM
  7. AMLODIPINE [Concomitant]
     Active Substance: AMLODIPINE BESYLATE
     Dosage: UNK
  8. CLARITIN [Concomitant]
     Active Substance: LORATADINE
     Dosage: UNK
  9. COLCHICINE [Concomitant]
     Active Substance: COLCHICINE
     Dosage: UNK
  10. DUCODYL [Concomitant]
  11. FENTANYL [Concomitant]
     Active Substance: FENTANYL
     Dosage: UNK
  12. NEURONTIN [Concomitant]
     Active Substance: GABAPENTIN
     Dosage: UNK
  13. OMEPRAZOLE [Concomitant]
     Active Substance: OMEPRAZOLE
     Dosage: UNK
  14. ONDANSETRON [Concomitant]
     Active Substance: ONDANSETRON
     Dosage: UNK
  15. PREDNISONE [Concomitant]
     Active Substance: PREDNISONE
     Dosage: UNK
  16. PROMETHAZINE [Concomitant]
     Active Substance: PROMETHAZINE HYDROCHLORIDE
     Dosage: UNK
  17. RESTORIL [Concomitant]
     Active Substance: TEMAZEPAM
     Dosage: UNK
  18. TYLENOL [Concomitant]
     Active Substance: ACETAMINOPHEN
     Dosage: UNK
  19. VITAMIN D2 [Concomitant]
     Active Substance: ERGOCALCIFEROL
     Dosage: UNK
  20. TECENTRIQ [Concomitant]
     Active Substance: ATEZOLIZUMAB
     Dosage: UNK
  21. XGEVA [Concomitant]
     Active Substance: DENOSUMAB
  22. TRELSTAR [Concomitant]
     Active Substance: TRIPTORELIN PAMOATE

REACTIONS (25)
  - Flatulence [Unknown]
  - Neck pain [Unknown]
  - Thyroid function test abnormal [Recovered/Resolved]
  - Eye infection [Recovering/Resolving]
  - Skin depigmentation [Unknown]
  - Back pain [Unknown]
  - Pruritus [Recovered/Resolved]
  - Skin ulcer [Recovering/Resolving]
  - Headache [Unknown]
  - Epistaxis [Unknown]
  - Fatigue [Unknown]
  - Arthralgia [Unknown]
  - Weight decreased [Unknown]
  - Nausea [Recovering/Resolving]
  - Constipation [Unknown]
  - Vomiting [Unknown]
  - Stomatitis [Recovered/Resolved]
  - Diarrhoea [Unknown]
  - Decreased appetite [Recovering/Resolving]
  - Blood pressure increased [Recovered/Resolved]
  - Taste disorder [Unknown]
  - Pain in extremity [Unknown]
  - Product dose omission issue [Unknown]
  - Inappropriate schedule of product administration [Unknown]
  - Off label use [Unknown]

NARRATIVE: CASE EVENT DATE: 20220701
